FAERS Safety Report 9171403 (Version 2)
Quarter: 2013Q1

REPORT INFORMATION
  Report Type: Spontaneous
  Country: IT (occurrence: None)
  Receive Date: 20130312
  Receipt Date: 20130319
  Transmission Date: 20140127
  Serious: Yes (Hospitalization)
  Sender: FDA-Public Use
  Company Number: FK201300731

PATIENT
  Age: 95 Year
  Sex: Male
  Weight: 65 kg

DRUGS (11)
  1. PIPERACILLIN/TAZOBACTAM [Suspect]
     Indication: CHRONIC OBSTRUCTIVE PULMONARY DISEASE
     Route: 042
     Dates: start: 20130128, end: 20130205
  2. NITRATE BANDAGES (SILVER NITRATE) (SILVER NITRATE) [Concomitant]
     Indication: CHRONIC OBSTRUCTIVE PULMONARY DISEASE
     Dosage: 9 GM, 1 IN 1 D, INTRAVENOUS (NOT OTHERWISE SPECIFIED)?
  3. ACETYLSALICYLIC ACID (ACETYLSALICYLIC ACID) ACETYLSALICYLIC ACID [Concomitant]
  4. VALSARTAN (ACETYLSALICYLIC ACID)  (ACETYLSALICYLIC ACID ) [Concomitant]
  5. FUROSEMIDE [Concomitant]
  6. CLOPIDOGREL (CLOPIDOGREL) (CLOPIDOGREL) [Concomitant]
  7. PANTOPRAZOLE (PANTOPRAZOLE) PANTOPRAZOLE (PANTOPRAZOLE) [Concomitant]
  8. IVABRADINE (IVABRADINE) (IVABRADINE) [Concomitant]
  9. PREDNISOLONE (PREDNISOLONE) (PREDNISOLONE) [Concomitant]
  10. LORATADINE (LORATADINE) (LORATADINE) [Concomitant]
  11. TAMSULOSIN (TAMSULOSIN) (TAMSULOSIN) [Concomitant]

REACTIONS (1)
  - Dermatitis [None]
